FAERS Safety Report 4281621-6 (Version None)
Quarter: 2004Q1

REPORT INFORMATION
  Report Type: 
  Country: None (occurrence: None)
  Receive Date: 20040105
  Receipt Date: 20030423
  Transmission Date: 20041129
  Serious: Yes (Hospitalization)
  Sender: FDA-Public Use
  Company Number: US010902

PATIENT
  Sex: Male

DRUGS (1)
  1. ACTIQ [Suspect]

REACTIONS (4)
  - ABDOMINAL PAIN UPPER [None]
  - AGITATION [None]
  - DRUG WITHDRAWAL SYNDROME [None]
  - NAUSEA [None]
